FAERS Safety Report 8282209-2 (Version None)
Quarter: 2012Q2

REPORT INFORMATION
  Report Type: 
  Country: None (occurrence: None)
  Receive Date: 20120413
  Receipt Date: 20120404
  Transmission Date: 20120825
  Serious: Yes (Other)
  Sender: FDA-Public Use
  Company Number: PHHY2012FR029477

PATIENT
  Sex: Female

DRUGS (3)
  1. EVISTA [Concomitant]
     Dosage: 60 MG, QD
     Dates: start: 20050127
  2. RASILEZ HCT [Suspect]
     Indication: HYPERTENSION
     Dosage: 150/12.5 MG QD
     Route: 048
     Dates: start: 20101011
  3. BISOPROLOL FUMARATE [Concomitant]
     Dates: start: 20090430

REACTIONS (4)
  - DYSPHAGIA [None]
  - VOMITING [None]
  - GASTROINTESTINAL DISORDER [None]
  - STRESS [None]
